FAERS Safety Report 19448927 (Version 2)
Quarter: 2021Q3

REPORT INFORMATION
  Report Type: Report from Study
  Country: US (occurrence: US)
  Receive Date: 20210622
  Receipt Date: 20210818
  Transmission Date: 20211014
  Serious: Yes (Hospitalization, Other)
  Sender: FDA-Public Use
  Company Number: NVSC2021US130283

PATIENT
  Age: 53 Year
  Sex: Female

DRUGS (1)
  1. ENTRESTO [Suspect]
     Active Substance: SACUBITRIL\VALSARTAN
     Indication: CARDIAC FAILURE
     Dosage: 100 (49/51) MG, BID
     Route: 048
     Dates: start: 202006

REACTIONS (5)
  - Fall [Unknown]
  - Balance disorder [Unknown]
  - Hypotension [Unknown]
  - Ankle fracture [Unknown]
  - Dizziness [Unknown]

NARRATIVE: CASE EVENT DATE: 202104
